FAERS Safety Report 4686462-3 (Version None)
Quarter: 2005Q2

REPORT INFORMATION
  Report Type: 
  Country: None (occurrence: None)
  Receive Date: 20050606
  Receipt Date: 20050524
  Transmission Date: 20051028
  Serious: Yes (Death, Other)
  Sender: FDA-Public Use
  Company Number: PHFR2004GB04116

PATIENT
  Age: 77 Year
  Sex: Male

DRUGS (8)
  1. VISUDYNE [Suspect]
     Dates: start: 20030801, end: 20030801
  2. PIOGLITAZONE HCL [Concomitant]
  3. METFORMIN HCL [Concomitant]
  4. GLICLAZIDE [Concomitant]
  5. SIMVASTATIN [Concomitant]
  6. ADALAT [Concomitant]
  7. LANSOPRAZOLE [Concomitant]
  8. BENDROFLUAZIDE [Concomitant]

REACTIONS (3)
  - BLADDER CANCER STAGE III [None]
  - HAEMATURIA [None]
  - THERAPY NON-RESPONDER [None]
